FAERS Safety Report 12321693 (Version 1)
Quarter: 2016Q2

REPORT INFORMATION
  Report Type: Spontaneous
  Country: US (occurrence: None)
  Receive Date: 20160429
  Receipt Date: 20160429
  Transmission Date: 20160815
  Serious: No
  Sender: FDA-Public Use
  Company Number: None

PATIENT
  Age: 37 Year
  Sex: Female

DRUGS (3)
  1. RECLAST [Concomitant]
     Active Substance: ZOLEDRONIC ACID
  2. IBRANCE [Suspect]
     Active Substance: PALBOCICLIB
     Indication: OSTEOPOROSIS
     Dosage: 1 CAP QD X 21 DAYS ORAL
     Route: 048
     Dates: start: 20160331
  3. LEUPROLIDE [Concomitant]
     Active Substance: LEUPROLIDE

REACTIONS (2)
  - Nausea [None]
  - Gingival swelling [None]

NARRATIVE: CASE EVENT DATE: 201604
